FAERS Safety Report 18904387 (Version 5)
Quarter: 2022Q1

REPORT INFORMATION
  Report Type: Spontaneous
  Country: DE (occurrence: DE)
  Receive Date: 20210217
  Receipt Date: 20220207
  Transmission Date: 20220423
  Serious: Yes (Other)
  Sender: FDA-Public Use
  Company Number: DE-TAKEDA-2021TEU001174

PATIENT
  Age: 67 Year
  Sex: Male

DRUGS (9)
  1. PANTOPRAZOLE [Suspect]
     Active Substance: PANTOPRAZOLE
     Indication: Acute respiratory distress syndrome
     Dosage: 40 MILLIGRAM, QD
     Route: 042
     Dates: end: 20200423
  2. PROPOFOL [Suspect]
     Active Substance: PROPOFOL
     Indication: Acute respiratory distress syndrome
     Dosage: UNK
     Route: 042
     Dates: start: 20200319, end: 20200404
  3. REMDESIVIR [Suspect]
     Active Substance: REMDESIVIR
     Indication: Acute respiratory distress syndrome
     Dosage: 200 MILLIGRAM, QD
     Route: 042
     Dates: start: 20200326, end: 20200326
  4. REMDESIVIR [Suspect]
     Active Substance: REMDESIVIR
     Indication: COVID-19
     Dosage: 100 MILLIGRAM, QD
     Route: 042
     Dates: start: 20200327, end: 20200329
  5. SUFENTANIL [Suspect]
     Active Substance: SUFENTANIL
     Indication: Acute respiratory distress syndrome
     Dosage: UNK
     Route: 042
     Dates: start: 20200319, end: 20200423
  6. NOREPINEPHRINE [Suspect]
     Active Substance: NOREPINEPHRINE
     Indication: Acute respiratory distress syndrome
     Dosage: UNK
     Route: 042
     Dates: end: 20200421
  7. POLYETHYLENE GLYCOLS [Suspect]
     Active Substance: POLYETHYLENE GLYCOLS
     Indication: Acute respiratory distress syndrome
     Dosage: 13 GRAM, QD
     Route: 049
     Dates: end: 20200423
  8. METOCLOPRAMIDE [Suspect]
     Active Substance: METOCLOPRAMIDE
     Indication: Acute respiratory distress syndrome
     Dosage: 10 MILLIGRAM, QD
     Route: 042
     Dates: end: 20200417
  9. ENOXAPARIN [Suspect]
     Active Substance: ENOXAPARIN
     Indication: Acute respiratory distress syndrome
     Dosage: 40 MILLIGRAM, QD
     Route: 058
     Dates: end: 20200423

REACTIONS (1)
  - Symmetrical drug-related intertriginous and flexural exanthema [Recovered/Resolved]

NARRATIVE: CASE EVENT DATE: 20200330
